FAERS Safety Report 23191730 (Version 1)
Quarter: 2023Q4

REPORT INFORMATION
  Report Type: Spontaneous
  Country: US (occurrence: None)
  Receive Date: 20231115
  Receipt Date: 20231115
  Transmission Date: 20240110
  Serious: Yes (Life-Threatening, Hospitalization, Other)
  Sender: FDA-Public Use
  Company Number: None

PATIENT
  Age: 64 Year
  Sex: Male
  Weight: 87.75 kg

DRUGS (5)
  1. GATTEX [Suspect]
     Active Substance: TEDUGLUTIDE\WATER
     Indication: Short-bowel syndrome
     Dosage: 1 INJCTION DALY SUBCUTANEOUS
     Route: 058
     Dates: start: 20220601, end: 20221231
  2. CEFDINIR [Concomitant]
     Active Substance: CEFDINIR
  3. Postassium Citrate [Concomitant]
  4. LOPERAMIDE [Concomitant]
     Active Substance: LOPERAMIDE
  5. DIETARY SUPPLEMENT\PROBIOTICS [Concomitant]
     Active Substance: DIETARY SUPPLEMENT\PROBIOTICS NOS

REACTIONS (9)
  - Gallbladder disorder [None]
  - Therapy cessation [None]
  - Infection [None]
  - Bone marrow disorder [None]
  - Platelet count decreased [None]
  - White blood cell count decreased [None]
  - Red blood cell count decreased [None]
  - Neutrophil count decreased [None]
  - Acute myeloid leukaemia [None]

NARRATIVE: CASE EVENT DATE: 20230511
